FAERS Safety Report 8975911 (Version 1)
Quarter: 2012Q4

REPORT INFORMATION
  Report Type: 
  Country: US (occurrence: US)
  Receive Date: 20121219
  Receipt Date: 20121219
  Transmission Date: 20130627
  Serious: Yes (Other)
  Sender: FDA-Public Use
  Company Number: US-GLAXOSMITHKLINE-A1005929A

PATIENT

DRUGS (1)
  1. ADVAIR [Suspect]
     Route: 065

REACTIONS (3)
  - Adrenal suppression [Unknown]
  - Weight increased [Unknown]
  - Cushingoid [Unknown]
